FAERS Safety Report 11626839 (Version 2)
Quarter: 2015Q4

REPORT INFORMATION
  Report Type: Spontaneous
  Country: US (occurrence: US)
  Receive Date: 20151013
  Receipt Date: 20151111
  Transmission Date: 20160304
  Serious: No
  Sender: FDA-Public Use
  Company Number: US-PFIZER INC-2015340189

PATIENT
  Age: 45 Year
  Sex: Male

DRUGS (2)
  1. VIAGRA [Suspect]
     Active Substance: SILDENAFIL CITRATE
     Dosage: HALF OF THE TABLET, UNK
  2. VIAGRA [Suspect]
     Active Substance: SILDENAFIL CITRATE
     Indication: ERECTILE DYSFUNCTION
     Dosage: TOOK QUARTER OF THE TABLET, UNK

REACTIONS (3)
  - Suspected counterfeit product [Unknown]
  - Product use issue [Unknown]
  - Drug ineffective [Unknown]
